FAERS Safety Report 6763668-0 (Version None)
Quarter: 2010Q2

REPORT INFORMATION
  Report Type: 
  Country: None (occurrence: None)
  Receive Date: 20100610
  Receipt Date: 20100527
  Transmission Date: 20101027
  Serious: No
  Sender: FDA-Public Use
  Company Number: US-B.I. PHARMACEUTICALS,INC./RIDGEFIELD-2010-BP-05978BP

PATIENT
  Age: 71 Year
  Sex: Female

DRUGS (3)
  1. MICARDIS [Suspect]
     Indication: HYPERTENSION
     Dosage: 80 MG
     Route: 048
     Dates: start: 20100501
  2. METOPROLOL TARTRATE [Concomitant]
     Indication: HYPERTENSION
     Dosage: 25 MG
  3. ALEVE (CAPLET) [Concomitant]
     Indication: TENDONITIS

REACTIONS (3)
  - BLOOD POTASSIUM INCREASED [None]
  - PARAESTHESIA [None]
  - RASH MACULAR [None]
